FAERS Safety Report 9961641 (Version 1)
Quarter: 2014Q1

REPORT INFORMATION
  Report Type: Report from Study
  Country: US (occurrence: US)
  Receive Date: 20140305
  Receipt Date: 20140305
  Transmission Date: 20141002
  Serious: No
  Sender: FDA-Public Use
  Company Number: US-ABBVIE-13P-163-1113066-00

PATIENT
  Age: 78 Year
  Sex: Female

DRUGS (21)
  1. HUMIRA [Suspect]
     Indication: CROHN^S DISEASE
     Route: 058
     Dates: start: 20130504
  2. NEURONTIN [Concomitant]
     Indication: FIBROMYALGIA
  3. NEURONTIN [Concomitant]
     Indication: ARTHRITIS
  4. METHADONE [Concomitant]
     Indication: PAIN
  5. METHADONE [Concomitant]
  6. LEVOTHYROXINE [Concomitant]
     Indication: HYPOTHYROIDISM
  7. DILTIAZEM [Concomitant]
     Indication: CARDIAC DISORDER
  8. POTASSIUM [Concomitant]
     Indication: PRODUCT USED FOR UNKNOWN INDICATION
  9. TOPROL [Concomitant]
     Indication: CARDIAC DISORDER
  10. TOPROL [Concomitant]
     Indication: BLOOD PRESSURE
  11. TOPROL [Concomitant]
     Indication: PRODUCT USED FOR UNKNOWN INDICATION
     Dosage: 600 MG/400 MG
  12. VITAMIN D3 [Concomitant]
     Indication: PRODUCT USED FOR UNKNOWN INDICATION
  13. SENIOR MULTI-VITAMIN [Concomitant]
     Indication: PRODUCT USED FOR UNKNOWN INDICATION
  14. MAGNESIUM OXIDE [Concomitant]
     Indication: PRODUCT USED FOR UNKNOWN INDICATION
  15. COUMADIN [Concomitant]
     Indication: ANTICOAGULANT THERAPY
  16. COUMADIN [Concomitant]
     Dosage: 1 DAY PER WEED FLOATING SCALE DEPENDS ON PTT LABS
  17. TRAZODONE [Concomitant]
     Indication: RESTLESSNESS
  18. SIMVASTATIN [Concomitant]
     Indication: BLOOD CHOLESTEROL INCREASED
  19. NEXIUM [Concomitant]
     Indication: GASTRIC DISORDER
  20. SANCTURA [Concomitant]
     Indication: URINARY INCONTINENCE
  21. SANCTURA [Concomitant]
     Indication: NAUSEA

REACTIONS (6)
  - Urinary tract infection [Not Recovered/Not Resolved]
  - Urinary tract infection [Not Recovered/Not Resolved]
  - Arthritis [Not Recovered/Not Resolved]
  - Arthralgia [Not Recovered/Not Resolved]
  - Arthralgia [Not Recovered/Not Resolved]
  - Pain in extremity [Not Recovered/Not Resolved]
